FAERS Safety Report 12434956 (Version 1)
Quarter: 2016Q2

REPORT INFORMATION
  Report Type: Spontaneous
  Country: US (occurrence: US)
  Receive Date: 20160603
  Receipt Date: 20160603
  Transmission Date: 20160815
  Serious: No
  Sender: FDA-Public Use
  Company Number: US-ROCHE-1663270

PATIENT
  Sex: Female

DRUGS (1)
  1. ACTEMRA [Suspect]
     Active Substance: TOCILIZUMAB
     Indication: RHEUMATOID ARTHRITIS
     Route: 058
     Dates: start: 20151024

REACTIONS (6)
  - Dizziness [Unknown]
  - Tinnitus [Unknown]
  - Nausea [Unknown]
  - Dry mouth [Unknown]
  - Vomiting [Unknown]
  - Headache [Unknown]
